FAERS Safety Report 4772296-8 (Version None)
Quarter: 2005Q3

REPORT INFORMATION
  Report Type: 
  Country: None (occurrence: None)
  Receive Date: 20050919
  Receipt Date: 20050623
  Transmission Date: 20060218
  Serious: No
  Sender: FDA-Public Use
  Company Number: US-BRISTOL-MYERS SQUIBB COMPANY-13013628

PATIENT
  Age: 35 Year
  Sex: Female

DRUGS (1)
  1. DEFINITY [Suspect]
     Route: 042
     Dates: start: 20050622, end: 20050622

REACTIONS (5)
  - EAR DISORDER [None]
  - FEELING HOT [None]
  - HEART RATE INCREASED [None]
  - HYPOAESTHESIA [None]
  - NAUSEA [None]
